FAERS Safety Report 24944367 (Version 1)
Quarter: 2025Q1

REPORT INFORMATION
  Report Type: Spontaneous
  Country: DE (occurrence: DE)
  Receive Date: 20250208
  Receipt Date: 20250208
  Transmission Date: 20250409
  Serious: Yes (Hospitalization, Congenital Anomaly)
  Sender: TEVA
  Company Number: DE-TEVA-VS-3293761

PATIENT
  Age: 0 Day

DRUGS (1)
  1. COPAXONE [Suspect]
     Active Substance: GLATIRAMER ACETATE
     Indication: Multiple sclerosis
     Route: 064
     Dates: start: 20200812, end: 20230828

REACTIONS (2)
  - Epilepsy congenital [Not Recovered/Not Resolved]
  - Foetal exposure during pregnancy [Unknown]
